FAERS Safety Report 4964561-6 (Version None)
Quarter: 2006Q2

REPORT INFORMATION
  Report Type: 
  Country: None (occurrence: None)
  Receive Date: 20060406
  Receipt Date: 20060328
  Transmission Date: 20061013
  Serious: Yes (Hospitalization)
  Sender: FDA-Public Use
  Company Number: 440985

PATIENT
  Age: 74 Year
  Sex: Male

DRUGS (11)
  1. KREDEX [Suspect]
     Indication: CARDIAC FAILURE
     Dosage: 25MG TWICE PER DAY
     Route: 048
  2. COLCHICINE [Suspect]
     Indication: DRUG USE FOR UNKNOWN INDICATION
     Dosage: 1MG PER DAY
     Route: 048
     Dates: start: 20060204
  3. BURINEX [Suspect]
     Indication: CARDIAC FAILURE
     Dosage: 1MG TWICE PER DAY
     Route: 048
     Dates: start: 20060204
  4. TIENAM [Suspect]
     Indication: STAPHYLOCOCCAL INFECTION
     Dosage: 500MG PER DAY
     Route: 042
     Dates: start: 20060111, end: 20060204
  5. MOPRAL [Suspect]
     Indication: DRUG USE FOR UNKNOWN INDICATION
     Dosage: 20MG PER DAY
     Route: 048
     Dates: start: 20060204
  6. ZYVOXID [Suspect]
     Indication: STAPHYLOCOCCAL INFECTION
     Dosage: 600MG TWICE PER DAY
     Route: 048
     Dates: start: 20060111, end: 20060204
  7. ALLOPURINOL [Concomitant]
     Indication: DRUG USE FOR UNKNOWN INDICATION
  8. TAHOR [Concomitant]
     Indication: DRUG USE FOR UNKNOWN INDICATION
     Route: 065
  9. ALDACTONE [Concomitant]
     Indication: DRUG USE FOR UNKNOWN INDICATION
     Route: 065
  10. PLAVIX [Concomitant]
     Indication: DRUG USE FOR UNKNOWN INDICATION
     Route: 065
  11. ATACAND [Concomitant]
     Indication: DRUG USE FOR UNKNOWN INDICATION
     Route: 065

REACTIONS (6)
  - ABDOMINAL PAIN [None]
  - ATRIAL FIBRILLATION [None]
  - BONE MARROW FAILURE [None]
  - NORMOCHROMIC NORMOCYTIC ANAEMIA [None]
  - TENSION [None]
  - THROMBOCYTOPENIA [None]
